FAERS Safety Report 6067059-X (Version None)
Quarter: 2009Q1

REPORT INFORMATION
  Report Type: 
  Country: None (occurrence: None)
  Receive Date: 20090205
  Receipt Date: 20090128
  Transmission Date: 20090719
  Serious: Yes (Other)
  Sender: FDA-Public Use
  Company Number: SE-NOVOPROD-283626

PATIENT
  Age: 50 Year
  Sex: Female

DRUGS (13)
  1. LEVEMIR [Suspect]
     Indication: DIABETES MELLITUS
  2. HUMALOG [Suspect]
  3. CLARITHROMYCIN [Suspect]
     Indication: UPPER RESPIRATORY TRACT INFECTION
     Dates: start: 20080611, end: 20080617
  4. SIMVASTATIN [Concomitant]
     Dosage: 20 MG, UNK
  5. LEVOTHYROXINE SODIUM [Concomitant]
     Dosage: 75 UG, UNK
  6. TRYPTISOL [Concomitant]
     Dosage: 25 MG, UNK
  7. ELOCON [Concomitant]
  8. ZOFRAN [Concomitant]
     Dosage: 4 MG, UNK
     Route: 048
  9. VENTOLIN [Concomitant]
     Dosage: 50 UG, UNK
     Route: 055
  10. PLAVIX [Concomitant]
  11. ATACAND [Concomitant]
     Dosage: 4 MG, UNK
  12. SERETIDE                           /01420901/ [Concomitant]
     Dosage: 50 UG, UNK
     Route: 055
  13. DOXYFERM [Concomitant]
     Indication: UPPER RESPIRATORY TRACT INFECTION

REACTIONS (4)
  - CONVULSION [None]
  - DRUG INTERACTION [None]
  - HYPOGLYCAEMIA [None]
  - SHOCK HYPOGLYCAEMIC [None]
